FAERS Safety Report 25703770 (Version 2)
Quarter: 2025Q3

REPORT INFORMATION
  Report Type: Report from Study
  Country: US (occurrence: US)
  Receive Date: 20250820
  Receipt Date: 20250901
  Transmission Date: 20251021
  Serious: Yes (Hospitalization, Other)
  Sender: BIOGEN
  Company Number: US-BIOGEN-2025BI01300966

PATIENT
  Sex: Female
  Weight: 88.45 kg

DRUGS (18)
  1. TYSABRI [Suspect]
     Active Substance: NATALIZUMAB
     Indication: Multiple sclerosis
     Route: 050
     Dates: start: 20190305, end: 202412
  2. TYSABRI [Suspect]
     Active Substance: NATALIZUMAB
     Route: 050
  3. PANTOPRAZOLE SODIUM [Concomitant]
     Active Substance: PANTOPRAZOLE SODIUM
     Indication: Product used for unknown indication
     Dosage: 40 MG TABLET DELAYED RELEASE, 1 TABLET ORALLY 1/2 TO 1 HOUR BEFORE MORNING MEAL, ONCE A DAY.
     Route: 050
  4. BUSPIRONE HCL [Concomitant]
     Active Substance: BUSPIRONE HYDROCHLORIDE
     Indication: Product used for unknown indication
     Route: 050
  5. ALBUTEROL SULFATE [Concomitant]
     Active Substance: ALBUTEROL SULFATE
     Indication: Product used for unknown indication
     Route: 050
  6. ACETAMINOPHEN\HYDROCODONE [Concomitant]
     Active Substance: ACETAMINOPHEN\HYDROCODONE
     Indication: Product used for unknown indication
     Dosage: 10-325 MG TABLET, 1 TABLET AS NEEDED ORALLY EVERY 6 HOURS.
     Route: 050
  7. MINERALS\VITAMINS [Concomitant]
     Active Substance: MINERALS\VITAMINS
     Indication: Product used for unknown indication
     Route: 050
  8. PRAVASTATIN SODIUM [Concomitant]
     Active Substance: PRAVASTATIN SODIUM
     Indication: Product used for unknown indication
     Dosage: 40 MG TABLET, 1 TABLET ORALLY ONCE A DAY.
     Route: 050
  9. LEXAPRO [Concomitant]
     Active Substance: ESCITALOPRAM OXALATE
     Indication: Product used for unknown indication
     Dosage: 20 MG TABLET, 1 TABLET ORALLY ONCE A DAY.
     Route: 050
  10. METOPROLOL TARTRATE [Concomitant]
     Active Substance: METOPROLOL TARTRATE
     Indication: Product used for unknown indication
     Dosage: 25 MG TABLET, 1 TABLET WITH FOOD ORALLY TWICE A DAY.
     Route: 050
  11. ASPIRIN [Concomitant]
     Active Substance: ASPIRIN
     Indication: Product used for unknown indication
     Dosage: 81 MG TABLET DELAYED RELEASE, 1 TABLET ORALLY ONCE A DAY
     Route: 050
  12. OMEPRAZOLE MAGNESIUM [Concomitant]
     Active Substance: OMEPRAZOLE MAGNESIUM
     Indication: Product used for unknown indication
     Dosage: 20 MG TABLET DELAYED RELEASE, 1 TABLET 30 MINUTES BEFORE MORNING MEAL ORALLY ONCE A DAY.
     Route: 050
  13. ZYRTEC [Concomitant]
     Active Substance: CETIRIZINE HYDROCHLORIDE
     Indication: Product used for unknown indication
     Dosage: 10 MG CAPSULE, 1 CAPSULE ORALLY ONCE A DAY
     Route: 050
  14. MOVANTIK [Concomitant]
     Active Substance: NALOXEGOL OXALATE
     Indication: Product used for unknown indication
     Dosage: 25 MG TABLET, 1 TABLET IN THE MORNING ORALLY ONCE A DAY.
     Route: 050
  15. MODAFINIL [Concomitant]
     Active Substance: MODAFINIL
     Indication: Product used for unknown indication
     Dosage: 200 MG TABLET, 1 TABLET IN THE MORNING ORALLY ONCE A DAY.
     Route: 050
  16. MODAFINIL [Concomitant]
     Active Substance: MODAFINIL
     Route: 050
  17. CYANOCOBALAMIN [Concomitant]
     Active Substance: CYANOCOBALAMIN
     Indication: Product used for unknown indication
     Dosage: 1000 MCG/ML SOLUTION, INJECT 1ML INTRAMUSCULARLY ONCE MONTHLY.
     Route: 050
  18. ERGOCALCIFEROL [Concomitant]
     Active Substance: ERGOCALCIFEROL
     Indication: Product used for unknown indication
     Dosage: 1.25 MG (50000 UT) CAPSULE, ORAL THREE TIMES A WEEK.
     Route: 050

REACTIONS (3)
  - Hemiplegia [Unknown]
  - Influenza [Recovered/Resolved]
  - Lymphoedema [Unknown]

NARRATIVE: CASE EVENT DATE: 20250101
